FAERS Safety Report 10189580 (Version 1)
Quarter: 2014Q2

REPORT INFORMATION
  Report Type: Spontaneous
  Country: US (occurrence: US)
  Receive Date: 20140522
  Receipt Date: 20140522
  Transmission Date: 20141212
  Serious: Yes (Hospitalization)
  Sender: FDA-Public Use
  Company Number: US-GLAXOSMITHKLINE-A1073477A

PATIENT
  Age: 67 Year
  Sex: Male

DRUGS (11)
  1. ADVAIR [Suspect]
     Indication: DYSPNOEA
     Dosage: 1PUFF TWICE PER DAY
     Route: 055
  2. DIGOXIN [Concomitant]
  3. PRAVASTATIN [Concomitant]
  4. DILTIAZEM [Concomitant]
  5. SIMVASTATIN [Concomitant]
  6. CARTIA XT [Concomitant]
  7. LIPITOR [Concomitant]
  8. METOPROLOL [Concomitant]
  9. WARFARIN [Concomitant]
  10. SPIRIVA [Concomitant]
  11. VENTOLIN [Concomitant]

REACTIONS (3)
  - Lung neoplasm malignant [Recovered/Resolved]
  - Herpes zoster [Recovered/Resolved]
  - Nervous system disorder [Unknown]
